FAERS Safety Report 10943804 (Version 1)
Quarter: 2015Q1

REPORT INFORMATION
  Report Type: Spontaneous
  Country: US (occurrence: None)
  Receive Date: 20150212
  Receipt Date: 20150212
  Transmission Date: 20150721
  Serious: No
  Sender: FDA-Public Use
  Company Number: TPA2011A04930

PATIENT
  Age: 68 Year
  Sex: Male

DRUGS (17)
  1. CIMZIA [Concomitant]
     Active Substance: CERTOLIZUMAB PEGOL
  2. LASIX [Concomitant]
     Active Substance: FUROSEMIDE
  3. ALLOPURINOL. [Concomitant]
     Active Substance: ALLOPURINOL
  4. TRAMADOL [Concomitant]
     Active Substance: TRAMADOL
  5. CLONIDINE PATCH (CLONIDINE) [Concomitant]
  6. ALBUTEROL (SALBUTAMOL) [Concomitant]
     Active Substance: ALBUTEROL
  7. POTASSIUM CITRATE. [Concomitant]
     Active Substance: POTASSIUM CITRATE
  8. TESTIN (TESTOSTERONE) [Concomitant]
  9. VITAMIN D (ERGOCALCIFEROL) [Concomitant]
     Active Substance: ERGOCALCIFEROL
  10. ULORIC [Suspect]
     Active Substance: FEBUXOSTAT
     Indication: GOUT
     Dosage: 40 MG, 1 IN 1 D, PER ORAL
     Route: 048
     Dates: start: 20110620, end: 20110725
  11. NASONEX [Concomitant]
     Active Substance: MOMETASONE FUROATE
  12. PREDNISONE. [Concomitant]
     Active Substance: PREDNISONE
  13. LYRICA [Concomitant]
     Active Substance: PREGABALIN
  14. LOMOTIL (ATROPINE SULFATE, DIPHENOXYLATE HYDROCHLORIDE) [Concomitant]
  15. OMEPRAZOLE. [Concomitant]
     Active Substance: OMEPRAZOLE
  16. PROCRIT (ERYTHROPOIETIN) [Concomitant]
  17. VITAMIN B12 [Concomitant]
     Active Substance: CYANOCOBALAMIN

REACTIONS (3)
  - Condition aggravated [None]
  - Gout [None]
  - Drug ineffective [None]

NARRATIVE: CASE EVENT DATE: 2011
